FAERS Safety Report 8820518 (Version 1)
Quarter: 2012Q4

REPORT INFORMATION
  Report Type: 
  Country: US (occurrence: US)
  Receive Date: 20121002
  Receipt Date: 20121002
  Transmission Date: 20130627
  Serious: No
  Sender: FDA-Public Use
  Company Number: US-B.I. PHARMACEUTICALS,INC./RIDGEFIELD-2012-BP-23556BP

PATIENT
  Age: 87 None
  Sex: Male
  Weight: 80 kg

DRUGS (13)
  1. SPIRIVA [Suspect]
     Indication: PULMONARY OEDEMA
     Dosage: 18 mcg
     Route: 055
     Dates: start: 201205
  2. DILTIAZEM [Concomitant]
     Indication: HYPERTENSION
     Dosage: 180 mg
     Route: 048
  3. DONEPEZIL [Concomitant]
     Indication: MEMORY IMPAIRMENT
     Dosage: 10 mg
     Route: 048
  4. TERAZOSIN [Concomitant]
     Indication: PROSTATOMEGALY
     Dosage: 10 mg
     Route: 048
  5. SIMVASTATIN [Concomitant]
     Indication: BLOOD CHOLESTEROL INCREASED
     Dosage: 10 mg
     Route: 048
  6. VITAMIN D [Concomitant]
     Dosage: 1000 U
     Route: 048
  7. WARFARIN [Concomitant]
     Indication: ANTICOAGULANT THERAPY
     Route: 048
  8. WARFARIN [Concomitant]
     Indication: ATRIAL FIBRILLATION
  9. FUROSEMIDE [Concomitant]
     Indication: FLUID RETENTION
     Dosage: 60 mg
     Route: 048
  10. KLOR-CON [Concomitant]
     Indication: SUPPLEMENTATION THERAPY
     Dosage: 20 mEq
     Route: 048
  11. LISINOPRIL [Concomitant]
     Dosage: 2.5 mg
     Route: 048
     Dates: start: 201204
  12. FINASTERIDE [Concomitant]
     Dosage: 5 mg
     Route: 048
     Dates: start: 201204
  13. METOPROLOLTARTRATE [Concomitant]
     Dosage: 50 mg

REACTIONS (3)
  - Hypotension [Not Recovered/Not Resolved]
  - Dyspnoea [Unknown]
  - Abnormal loss of weight [Not Recovered/Not Resolved]
